FAERS Safety Report 16677399 (Version 1)
Quarter: 2019Q3

REPORT INFORMATION
  Report Type: Spontaneous
  Country: US (occurrence: US)
  Receive Date: 20190807
  Receipt Date: 20190807
  Transmission Date: 20191004
  Serious: No
  Sender: FDA-Public Use
  Company Number: PHHY2019US180091

PATIENT

DRUGS (1)
  1. VOLTAREN [Suspect]
     Active Substance: DICLOFENAC SODIUM
     Indication: OROPHARYNGEAL PAIN
     Dosage: UNK
     Route: 065

REACTIONS (3)
  - Product administered at inappropriate site [Unknown]
  - Product use in unapproved indication [Unknown]
  - Exposure via direct contact [Unknown]
